FAERS Safety Report 8512323-5 (Version None)
Quarter: 2012Q3

REPORT INFORMATION
  Report Type: 
  Country: None (occurrence: None)
  Receive Date: 20120716
  Receipt Date: 20120705
  Transmission Date: 20120928
  Serious: Yes (Hospitalization)
  Sender: FDA-Public Use
  Company Number: US-ACTELION-A-NJ2012-64966

PATIENT

DRUGS (3)
  1. CIALIS [Concomitant]
  2. ADCIRCA [Concomitant]
  3. TRACLEER [Suspect]
     Indication: PULMONARY ARTERIAL HYPERTENSION
     Dosage: UNK
     Route: 048

REACTIONS (8)
  - TRANSFUSION [None]
  - ANAEMIA [None]
  - DYSPNOEA [None]
  - BLOOD POTASSIUM INCREASED [None]
  - VASCULAR CAUTERISATION [None]
  - GASTRIC ANTRAL VASCULAR ECTASIA [None]
  - GASTROINTESTINAL HAEMORRHAGE [None]
  - FATIGUE [None]
